FAERS Safety Report 7324413-3 (Version None)
Quarter: 2011Q1

REPORT INFORMATION
  Report Type: 
  Country: None (occurrence: None)
  Receive Date: 20110301
  Receipt Date: 20110222
  Transmission Date: 20110831
  Serious: No
  Sender: FDA-Public Use
  Company Number: US-PFIZER INC-2011038555

PATIENT
  Sex: Female

DRUGS (1)
  1. VERAPAMIL HCL [Suspect]

REACTIONS (4)
  - MALAISE [None]
  - PSYCHOMOTOR HYPERACTIVITY [None]
  - FEELING JITTERY [None]
  - NAUSEA [None]
